FAERS Safety Report 6876614-6 (Version None)
Quarter: 2010Q3

REPORT INFORMATION
  Report Type: 
  Country: None (occurrence: None)
  Receive Date: 20100727
  Receipt Date: 20100719
  Transmission Date: 20110219
  Serious: Yes (Hospitalization)
  Sender: FDA-Public Use
  Company Number: GB-CEPHALON-2010003918

PATIENT
  Sex: Female
  Weight: 66 kg

DRUGS (2)
  1. TREANDA [Suspect]
     Route: 042
     Dates: end: 20100708
  2. RITUXIMAB [Suspect]
     Dates: end: 20100708

REACTIONS (7)
  - ADVERSE DRUG REACTION [None]
  - ANORECTAL DISCOMFORT [None]
  - CONSTIPATION [None]
  - HYPOPHAGIA [None]
  - NAUSEA [None]
  - RASH [None]
  - URINE OUTPUT DECREASED [None]
